FAERS Safety Report 6946670-5 (Version None)
Quarter: 2010Q3

REPORT INFORMATION
  Report Type: 
  Country: None (occurrence: None)
  Receive Date: 20100827
  Receipt Date: 20090803
  Transmission Date: 20110219
  Serious: No
  Sender: FDA-Public Use
  Company Number: US-ABBOTT-09P-163-0589664-00

PATIENT
  Sex: Female
  Weight: 68.1 kg

DRUGS (5)
  1. NIASPAN [Suspect]
     Indication: BLOOD CHOLESTEROL INCREASED
     Route: 048
     Dates: start: 20090201, end: 20090601
  2. NIASPAN [Suspect]
     Route: 048
     Dates: start: 20090601
  3. ORGANICALLY BOUND MINERALS [Concomitant]
     Indication: PHYTOTHERAPY
  4. ALLERNEST [Concomitant]
     Indication: PRODUCT USED FOR UNKNOWN INDICATION
  5. JUICE PLUS [Concomitant]
     Indication: PRODUCT USED FOR UNKNOWN INDICATION

REACTIONS (3)
  - ARTHROPOD STING [None]
  - LOCAL SWELLING [None]
  - UNEVALUABLE EVENT [None]
